FAERS Safety Report 9796069 (Version 3)
Quarter: 2014Q1

REPORT INFORMATION
  Report Type: Spontaneous
  Country: IT (occurrence: IT)
  Receive Date: 20140103
  Receipt Date: 20140110
  Transmission Date: 20141002
  Serious: Yes (Other)
  Sender: FDA-Public Use
  Company Number: IT-B.I. PHARMACEUTICALS,INC./RIDGEFIELD-2013-BI-34543IT

PATIENT
  Age: 88 Year
  Sex: Female

DRUGS (9)
  1. CATAPRESAN [Suspect]
     Dosage: 1 UNIT POSOLOGIC TOTAL
     Route: 048
     Dates: start: 20131021, end: 20131021
  2. SIMVASTATIN [Concomitant]
     Dosage: 20 MG
     Route: 048
  3. CARDIOASPIRIN [Concomitant]
     Dosage: 100 MG
     Route: 048
  4. NORVASC [Concomitant]
     Dosage: 10 MG
     Route: 048
  5. ROCALTROL [Concomitant]
     Dosage: 0.25 MCG
     Route: 048
  6. OSVAREN [Concomitant]
     Route: 065
  7. LASIX [Concomitant]
     Route: 065
  8. FERRO-GRAD [Concomitant]
     Route: 065
  9. AMLODIPINE [Concomitant]

REACTIONS (3)
  - Angioedema [Not Recovered/Not Resolved]
  - Dysphonia [Not Recovered/Not Resolved]
  - Dyspnoea [Not Recovered/Not Resolved]
